FAERS Safety Report 18371951 (Version 1)
Quarter: 2020Q4

REPORT INFORMATION
  Report Type: Spontaneous
  Country: GB (occurrence: GB)
  Receive Date: 20201012
  Receipt Date: 20201012
  Transmission Date: 20210114
  Serious: Yes (Death)
  Sender: FDA-Public Use
  Company Number: GB-TEVA-2020-GB-1836894

PATIENT
  Age: 60 Year
  Sex: Female

DRUGS (7)
  1. CYCLOPHOSPHAMIDE. [Suspect]
     Active Substance: CYCLOPHOSPHAMIDE
     Indication: METASTATIC MALIGNANT MELANOMA
     Dosage: 3600 MG
     Route: 042
     Dates: start: 20200311, end: 20200312
  2. DABRAFENIB [Concomitant]
     Active Substance: DABRAFENIB
     Indication: METASTATIC MALIGNANT MELANOMA
     Dosage: 300 MG
     Route: 048
     Dates: start: 201910, end: 20200308
  3. MELANOMA SPECIFIC TUMOUR INFILTRATING LYMPHOCYTES [Suspect]
     Active Substance: INVESTIGATIONAL PRODUCT
     Indication: METASTATIC MALIGNANT MELANOMA
     Dosage: 2X10^10 CELLS
     Route: 042
     Dates: start: 20200317, end: 20200317
  4. FLUDARABINE [Suspect]
     Active Substance: FLUDARABINE PHOSPHATE
     Indication: METASTATIC MALIGNANT MELANOMA
     Dosage: 40 MG
     Route: 042
     Dates: start: 20200311, end: 20200315
  5. MEROPENEM. [Concomitant]
     Active Substance: MEROPENEM
     Indication: PYREXIA
     Dosage: 3 GRAM
     Route: 042
     Dates: start: 20200314, end: 20200322
  6. TEICOPLANIN [Concomitant]
     Active Substance: TEICOPLANIN
     Indication: INFECTION
     Dosage: 400 MG
     Route: 042
     Dates: start: 20200314, end: 20200323
  7. TRAMETINIB [Concomitant]
     Active Substance: TRAMETINIB
     Indication: METASTATIC MALIGNANT MELANOMA
     Dosage: 2 MG
     Route: 048
     Dates: start: 201910, end: 20200308

REACTIONS (4)
  - Abdominal pain [Fatal]
  - Tumour haemorrhage [Fatal]
  - Thrombocytopenia [Fatal]
  - Hypotension [Fatal]

NARRATIVE: CASE EVENT DATE: 20200317
